FAERS Safety Report 8666748 (Version 7)
Quarter: 2014Q3

REPORT INFORMATION
  Report Type: Spontaneous
  Country: US (occurrence: US)
  Receive Date: 20120716
  Receipt Date: 20140729
  Transmission Date: 20150326
  Serious: Yes (Hospitalization, Disabling, Other)
  Sender: FDA-Public Use
  Company Number: US-009507513-2012SP005879

PATIENT
  Sex: Female
  Weight: 49.9 kg

DRUGS (2)
  1. [COMPOSITION UNSPECIFIED] [Suspect]
     Active Substance: UNSPECIFIED INGREDIENT
     Indication: WEIGHT DECREASED
  2. NUVARING [Suspect]
     Active Substance: ETHINYL ESTRADIOL\ETONOGESTREL
     Indication: CONTRACEPTION
     Dosage: UNK
     Dates: start: 20090630, end: 201002

REACTIONS (14)
  - Cerebrovascular accident [Not Recovered/Not Resolved]
  - Carotid artery stenosis [Unknown]
  - Paraesthesia [Unknown]
  - Anaemia [Not Recovered/Not Resolved]
  - Sleep disorder [Unknown]
  - Emotional disorder [Unknown]
  - Carotid artery thrombosis [Unknown]
  - Convulsion [Unknown]
  - Thrombocytosis [Unknown]
  - Cognitive disorder [Unknown]
  - Encephalomalacia [Unknown]
  - Carotid artery thrombosis [Unknown]
  - Hypokalaemia [Unknown]
  - Mental disorder [Unknown]

NARRATIVE: CASE EVENT DATE: 201002
